FAERS Safety Report 10616169 (Version 1)
Quarter: 2014Q4

REPORT INFORMATION
  Report Type: Spontaneous
  Country: US (occurrence: US)
  Receive Date: 20141201
  Receipt Date: 20141201
  Transmission Date: 20150529
  Serious: No
  Sender: FDA-Public Use
  Company Number: US-009507513-1411USA011598

PATIENT
  Sex: Male

DRUGS (4)
  1. REBETOL [Suspect]
     Active Substance: RIBAVIRIN
     Dosage: UNK
     Route: 048
  2. PEGINTRON [Suspect]
     Active Substance: PEGINTERFERON ALFA-2B
     Indication: HEPATITIS C
     Dosage: REDIPEN; 120 (UNITS UKNOWN); ROUTE: INJECTION
  3. SOVALDI [Concomitant]
     Active Substance: SOFOSBUVIR
     Dosage: UNK
  4. PEGASYS [Suspect]
     Active Substance: PEGINTERFERON ALFA-2A
     Dosage: UNK

REACTIONS (2)
  - Feeling abnormal [Unknown]
  - Drug administration error [Unknown]
